FAERS Safety Report 8616618-6 (Version None)
Quarter: 2012Q3

REPORT INFORMATION
  Report Type: 
  Country: None (occurrence: None)
  Receive Date: 20120823
  Receipt Date: 20120817
  Transmission Date: 20120928
  Serious: Yes (Death, Other)
  Sender: FDA-Public Use
  Company Number: NO-BAXTER-2011BH032000

PATIENT
  Age: 49 Year
  Sex: Male

DRUGS (10)
  1. CYCLOPHOSPHAMIDE [Suspect]
     Route: 042
  2. DOXORUBICIN HYDROCHLORIDE [Suspect]
     Route: 042
  3. ETOPOSIDE [Suspect]
     Route: 042
  4. CYCLOPHOSPHAMIDE [Suspect]
     Route: 042
  5. DOXORUBICIN HYDROCHLORIDE [Suspect]
     Route: 042
  6. PROCARBAZINE HYDROCHLORIDE [Suspect]
     Route: 048
  7. BLEOMYCIN BAXTER 15 000 IE LYOFILISAT TIL INJEKSJONSV?SKE/INFUSJONSV?S [Suspect]
     Route: 042
  8. ETOPOSIDE [Suspect]
     Route: 042
  9. VINCRISTINE [Suspect]
     Route: 042
  10. PREDNISOLONE [Suspect]
     Route: 048

REACTIONS (5)
  - PNEUMOCYSTIS JIROVECI PNEUMONIA [None]
  - SEPTIC SHOCK [None]
  - PYREXIA [None]
  - LUNG INFILTRATION [None]
  - BONE MARROW FAILURE [None]
